FAERS Safety Report 8049343-3 (Version None)
Quarter: 2012Q1

REPORT INFORMATION
  Report Type: 
  Country: None (occurrence: None)
  Receive Date: 20120117
  Receipt Date: 20120109
  Transmission Date: 20120608
  Serious: Yes (Hospitalization, Other)
  Sender: FDA-Public Use
  Company Number: AT-JNJFOC-20111207559

PATIENT
  Sex: Female
  Weight: 58 kg

DRUGS (4)
  1. CREON [Concomitant]
     Indication: PANCREATITIS
  2. XARELTO [Suspect]
     Indication: KNEE OPERATION
     Route: 048
     Dates: start: 20111204, end: 20111213
  3. LOVENOX [Concomitant]
     Indication: KNEE OPERATION
  4. PANTOPRAZOLE SODIUM [Concomitant]
     Indication: GASTRITIS

REACTIONS (1)
  - VENOUS THROMBOSIS [None]
